FAERS Safety Report 4720140-7 (Version None)
Quarter: 2005Q3

REPORT INFORMATION
  Report Type: 
  Country: None (occurrence: None)
  Receive Date: 20050721
  Receipt Date: 20040429
  Transmission Date: 20060218
  Serious: No
  Sender: FDA-Public Use
  Company Number: US-GLAXOSMITHKLINE-A0508951A

PATIENT
  Sex: Female

DRUGS (10)
  1. IMITREX [Suspect]
     Indication: MIGRAINE
     Dosage: 25MG AS REQUIRED
     Route: 048
  2. FOLIC ACID [Concomitant]
  3. PREMARIN [Concomitant]
  4. MOBIC [Concomitant]
  5. PROPRANOLOL [Concomitant]
  6. METHOTREXATE [Concomitant]
  7. PREDNISONE [Concomitant]
  8. ZYRTEC [Concomitant]
  9. ACIPHEX [Concomitant]
  10. ULTRACET [Concomitant]

REACTIONS (1)
  - THERAPEUTIC RESPONSE DECREASED [None]
